FAERS Safety Report 24041334 (Version 2)
Quarter: 2024Q3

REPORT INFORMATION
  Report Type: Spontaneous
  Country: US (occurrence: US)
  Receive Date: 20240702
  Receipt Date: 20240713
  Transmission Date: 20241016
  Serious: Yes (Hospitalization)
  Sender: TEVA
  Company Number: US-TEVA-VS-3214636

PATIENT
  Age: 88 Year
  Sex: Female

DRUGS (1)
  1. PREDNISONE [Suspect]
     Active Substance: PREDNISONE
     Indication: Eosinophilic pneumonia chronic
     Route: 065

REACTIONS (2)
  - Eosinophilic pneumonia chronic [Recovered/Resolved]
  - Rebound effect [Recovered/Resolved]
